FAERS Safety Report 25005705 (Version 1)
Quarter: 2025Q1

REPORT INFORMATION
  Report Type: Spontaneous
  Country: US (occurrence: None)
  Receive Date: 20250224
  Receipt Date: 20250224
  Transmission Date: 20250409
  Serious: Yes (Other)
  Sender: FDA-CTU
  Company Number: None

PATIENT
  Age: 49 Year
  Sex: Female

DRUGS (1)
  1. INFED [Suspect]
     Active Substance: IRON DEXTRAN
     Route: 041

REACTIONS (2)
  - Abdominal pain [None]
  - Infusion related reaction [None]

NARRATIVE: CASE EVENT DATE: 20241213
